FAERS Safety Report 9228050 (Version 2)
Quarter: 2013Q2

REPORT INFORMATION
  Report Type: Report from Study
  Country: FR (occurrence: FR)
  Receive Date: 20130412
  Receipt Date: 20130506
  Transmission Date: 20140414
  Serious: Yes (Death, Hospitalization)
  Sender: FDA-Public Use
  Company Number: FR-ROCHE-1194802

PATIENT
  Age: 83 Year
  Sex: Male
  Weight: 57 kg

DRUGS (9)
  1. BEVACIZUMAB [Suspect]
     Indication: COLORECTAL CANCER METASTATIC
     Route: 065
     Dates: end: 20130102
  2. KARDEGIC [Concomitant]
     Dosage: START DATE: BEFORE SEP/2012
     Route: 048
  3. MOPRAL (FRANCE) [Concomitant]
     Route: 048
     Dates: start: 201211
  4. FORLAX (FRANCE) [Concomitant]
     Indication: CONSTIPATION
     Route: 048
     Dates: start: 201211
  5. XATRAL [Concomitant]
     Route: 048
     Dates: start: 201211
  6. ZOLPIDEM [Concomitant]
     Dosage: START DATE: BEFORE SEP/2012
     Route: 048
  7. ZYLORIC [Concomitant]
     Dosage: START DATE: BEFORE SEP/2012
     Route: 048
  8. TARDYFERON [Concomitant]
     Route: 048
     Dates: start: 201211
  9. EUPANTOL [Concomitant]
     Route: 048
     Dates: start: 201211

REACTIONS (4)
  - Cardiac failure [Not Recovered/Not Resolved]
  - Bronchopneumopathy [Not Recovered/Not Resolved]
  - Colorectal cancer [Fatal]
  - Fall [Not Recovered/Not Resolved]
